FAERS Safety Report 17455609 (Version 1)
Quarter: 2020Q1

REPORT INFORMATION
  Report Type: Spontaneous
  Country: US (occurrence: US)
  Receive Date: 20200225
  Receipt Date: 20200225
  Transmission Date: 20200409
  Serious: No
  Sender: FDA-Public Use
  Company Number: None

PATIENT
  Age: 47 Year
  Sex: Male

DRUGS (3)
  1. ZINC. [Concomitant]
     Active Substance: ZINC
  2. MAGNESIUM [Concomitant]
     Active Substance: MAGNESIUM
  3. TOBRAMYCIN AND DEXAMETHASONE [Suspect]
     Active Substance: DEXAMETHASONE\TOBRAMYCIN
     Indication: EYE DISORDER
     Dosage: ?          QUANTITY:1 DROP(S);?
     Route: 047
     Dates: start: 20200221

REACTIONS (3)
  - Upper-airway cough syndrome [None]
  - Dysgeusia [None]
  - Throat irritation [None]

NARRATIVE: CASE EVENT DATE: 20200222
